FAERS Safety Report 6024139-2 (Version None)
Quarter: 2008Q4

REPORT INFORMATION
  Report Type: 
  Country: None (occurrence: None)
  Receive Date: 20081224
  Receipt Date: 20081211
  Transmission Date: 20090506
  Serious: Yes (Other)
  Sender: FDA-Public Use
  Company Number: KV200801363

PATIENT
  Sex: Male

DRUGS (1)
  1. PROPAFENONE HCL [Suspect]
     Indication: DRUG USE FOR UNKNOWN INDICATION
     Dosage: ORAL
     Route: 048
     Dates: start: 20030101

REACTIONS (2)
  - CHEST PAIN [None]
  - PRODUCT QUALITY ISSUE [None]
